FAERS Safety Report 23393334 (Version 3)
Quarter: 2024Q3

REPORT INFORMATION
  Report Type: Report from Study
  Country: BR (occurrence: BR)
  Receive Date: 20240111
  Receipt Date: 20240710
  Transmission Date: 20241016
  Serious: Yes (Disabling, Other)
  Sender: TAKEDA
  Company Number: BR-TAKEDA-2024TUS002708

PATIENT
  Age: 20 Year
  Sex: Female

DRUGS (2)
  1. HUMAN IMMUNOGLOBULIN G\HYALURONIDASE RECOMBINANT HUMAN [Suspect]
     Active Substance: HUMAN IMMUNOGLOBULIN G\HYALURONIDASE (HUMAN RECOMBINANT)
     Indication: Primary immunodeficiency syndrome
     Dosage: 50 GRAM
     Route: 058
     Dates: start: 20200320
  2. HUMAN IMMUNOGLOBULIN G\HYALURONIDASE RECOMBINANT HUMAN [Suspect]
     Active Substance: HUMAN IMMUNOGLOBULIN G\HYALURONIDASE (HUMAN RECOMBINANT)
     Dosage: 10 DOSAGE FORM, Q4WEEKS
     Route: 058

REACTIONS (10)
  - Autism spectrum disorder [Unknown]
  - Microcephaly [Unknown]
  - Disability [Unknown]
  - Eating disorder [Recovered/Resolved]
  - Chest pain [Recovered/Resolved]
  - Pyrexia [Recovered/Resolved]
  - Headache [Recovered/Resolved]
  - Nausea [Recovered/Resolved]
  - Agitation [Unknown]
  - Off label use [Unknown]

NARRATIVE: CASE EVENT DATE: 20231130
